FAERS Safety Report 4655650-4 (Version None)
Quarter: 2005Q2

REPORT INFORMATION
  Report Type: 
  Country: None (occurrence: None)
  Receive Date: 20050505
  Receipt Date: 20050422
  Transmission Date: 20051028
  Serious: Yes (Hospitalization, Other)
  Sender: FDA-Public Use
  Company Number: KII-2005-0016261

PATIENT
  Age: 36 Year
  Sex: Male

DRUGS (6)
  1. OXYCODONE HCL [Suspect]
     Indication: PAIN
     Dosage: 80 MG, Q8H, ORAL
     Route: 048
  2. HYDROMORPHONE HCL (SIMILAR TO NDA 21-044) (HYDROMOPRHONE HYDROCHLORIDE [Suspect]
     Indication: PAIN
     Dosage: SEE IMAGE
     Route: 048
  3. FENTANYL [Suspect]
     Indication: PAIN
     Dosage: ORAL
     Route: 048
  4. COMPAZINE [Suspect]
     Dosage: RECTAL
     Route: 054
  5. OTHER HYPNOTICS AND SEDATIVES () [Suspect]
  6. ANTIBIOTICS () [Suspect]

REACTIONS (22)
  - AGGRESSION [None]
  - AGITATION [None]
  - ANION GAP INCREASED [None]
  - ASTHENIA [None]
  - BLOOD GLUCOSE INCREASED [None]
  - CEREBRAL HAEMORRHAGE [None]
  - CONFUSIONAL STATE [None]
  - CYANOSIS [None]
  - DEPRESSED LEVEL OF CONSCIOUSNESS [None]
  - DRUG SCREEN POSITIVE [None]
  - FALL [None]
  - INADEQUATE ANALGESIA [None]
  - INCORRECT DOSE ADMINISTERED [None]
  - LETHARGY [None]
  - NEUROLOGIC NEGLECT SYNDROME [None]
  - NEUROLOGICAL EXAMINATION ABNORMAL [None]
  - OVERDOSE [None]
  - SCREAMING [None]
  - SUPERIOR SAGITTAL SINUS THROMBOSIS [None]
  - TACHYCARDIA [None]
  - TREMOR [None]
  - WHITE BLOOD CELL COUNT INCREASED [None]
